FAERS Safety Report 25932793 (Version 1)
Quarter: 2025Q4

REPORT INFORMATION
  Report Type: Spontaneous
  Country: US (occurrence: US)
  Receive Date: 20251017
  Receipt Date: 20251017
  Transmission Date: 20260117
  Serious: Yes (Other)
  Sender: CSL BEHRING
  Company Number: US-BEH-2025221232

PATIENT
  Age: 47 Year
  Sex: Female

DRUGS (1)
  1. ANDEMBRY [Suspect]
     Active Substance: GARADACIMAB-GXII
     Dosage: UNK
     Route: 065

REACTIONS (1)
  - Swelling [Unknown]
